FAERS Safety Report 8354292-7 (Version None)
Quarter: 2012Q2

REPORT INFORMATION
  Report Type: 
  Country: None (occurrence: None)
  Receive Date: 20120511
  Receipt Date: 20120430
  Transmission Date: 20120825
  Serious: Yes (Hospitalization, Other)
  Sender: FDA-Public Use
  Company Number: AU-JNJFOC-20120403133

PATIENT
  Sex: Male

DRUGS (3)
  1. LIPITOR [Concomitant]
  2. REMICADE [Suspect]
     Route: 042
     Dates: start: 20120301
  3. REMICADE [Suspect]
     Indication: PSORIASIS
     Route: 042

REACTIONS (2)
  - PSORIASIS [None]
  - ATRIAL FIBRILLATION [None]
